FAERS Safety Report 7627701-6 (Version None)
Quarter: 2011Q3

REPORT INFORMATION
  Report Type: 
  Country: None (occurrence: None)
  Receive Date: 20110721
  Receipt Date: 20110714
  Transmission Date: 20111222
  Serious: Yes (Other)
  Sender: FDA-Public Use
  Company Number: BR-PFIZER INC-2011160404

PATIENT
  Age: 40 Year
  Sex: Female
  Weight: 90 kg

DRUGS (2)
  1. TYGACIL [Suspect]
     Indication: OSTEOMYELITIS
  2. TYGACIL [Suspect]
     Indication: POSTOPERATIVE CARE
     Dosage: UNK
     Route: 042
     Dates: start: 20110510

REACTIONS (9)
  - EYE DISORDER [None]
  - SWELLING FACE [None]
  - OEDEMA PERIPHERAL [None]
  - FREQUENT BOWEL MOVEMENTS [None]
  - WEIGHT INCREASED [None]
  - NAUSEA [None]
  - JOINT SWELLING [None]
  - POLLAKIURIA [None]
  - SWELLING [None]
